FAERS Safety Report 13903772 (Version 10)
Quarter: 2018Q2

REPORT INFORMATION
  Report Type: Spontaneous
  Country: US (occurrence: US)
  Receive Date: 20170824
  Receipt Date: 20180521
  Transmission Date: 20180711
  Serious: Yes (Hospitalization)
  Sender: FDA-Public Use
  Company Number: US-ACTELION-A-NJ2017-158455

PATIENT
  Age: 51 Year
  Sex: Female
  Weight: 72.11 kg

DRUGS (6)
  1. VELETRI [Suspect]
     Active Substance: EPOPROSTENOL
     Indication: PULMONARY ARTERIAL HYPERTENSION
     Dosage: 18 NG/KG, PER MIN
     Route: 042
     Dates: end: 2018
  2. LETAIRIS [Concomitant]
     Active Substance: AMBRISENTAN
  3. VELETRI [Suspect]
     Active Substance: EPOPROSTENOL
     Dosage: 40 NG/KG, PER MIN
     Route: 042
  4. ORENITRAM [Concomitant]
     Active Substance: TREPROSTINIL
     Dosage: 4.5 MG, UNK
  5. VELETRI [Suspect]
     Active Substance: EPOPROSTENOL
     Dosage: 22 NG/KG, PER MIN
     Route: 042
  6. ADCIRCA [Concomitant]
     Active Substance: TADALAFIL

REACTIONS (11)
  - Cardiac failure acute [Unknown]
  - Device malfunction [Unknown]
  - Dyspnoea [Unknown]
  - Drug administration error [Unknown]
  - Tachycardia [Unknown]
  - Peripheral swelling [Unknown]
  - Abdominal distension [Unknown]
  - Pleural effusion [Unknown]
  - Fluid overload [Unknown]
  - Cardiac disorder [Unknown]
  - Pain [Unknown]
